FAERS Safety Report 7785068-7 (Version None)
Quarter: 2011Q3

REPORT INFORMATION
  Report Type: 
  Country: None (occurrence: None)
  Receive Date: 20110929
  Receipt Date: 20110919
  Transmission Date: 20111222
  Serious: Yes (Hospitalization)
  Sender: FDA-Public Use
  Company Number: US-BIOGENIDEC-2011BI035899

PATIENT
  Age: 38 Year
  Sex: Female

DRUGS (1)
  1. AVONEX [Suspect]
     Indication: MULTIPLE SCLEROSIS
     Route: 030
     Dates: start: 20080322

REACTIONS (9)
  - MASTOIDITIS [None]
  - DEAFNESS UNILATERAL [None]
  - EAR INFECTION [None]
  - BALANCE DISORDER [None]
  - SINUSITIS [None]
  - MULTIPLE SCLEROSIS RELAPSE [None]
  - HYPOAESTHESIA [None]
  - MUSCLE SPASMS [None]
  - NASOPHARYNGITIS [None]
